FAERS Safety Report 8180536-0 (Version None)
Quarter: 2012Q1

REPORT INFORMATION
  Report Type: 
  Country: None (occurrence: None)
  Receive Date: 20120302
  Receipt Date: 20120222
  Transmission Date: 20120608
  Serious: Yes (Hospitalization)
  Sender: FDA-Public Use
  Company Number: US-BAXTER-2012BH005329

PATIENT
  Age: 24 Year
  Sex: Female
  Weight: 56 kg

DRUGS (9)
  1. AMINO ACIDS NOS AND ELECTROLYTES NOS [Suspect]
     Indication: NUTRITIONAL SUPPORT
     Route: 042
     Dates: start: 20120222, end: 20120222
  2. AMINO ACIDS NOS AND ELECTROLYTES NOS [Suspect]
     Indication: DEHYDRATION
     Route: 042
     Dates: start: 20120222, end: 20120222
  3. ZOFRAN [Concomitant]
     Indication: VOMITING
     Route: 048
     Dates: start: 20111201
  4. INFUVITE ADULT [Suspect]
     Indication: VOMITING
     Route: 042
  5. DEXTROSE W/POTASSIUM CHLORIDE AND NACL [Concomitant]
     Indication: NUTRITIONAL SUPPORT
     Route: 042
     Dates: start: 20120219
  6. DEXTROSE 5% [Suspect]
     Indication: VOMITING
     Route: 042
  7. INTRALIPID 10% [Suspect]
     Indication: NUTRITIONAL SUPPORT
     Route: 042
     Dates: start: 20120221, end: 20120221
  8. ZOFRAN [Concomitant]
     Route: 042
     Dates: start: 20111201
  9. LACTATED RINGER'S [Suspect]
     Indication: VOMITING
     Route: 042

REACTIONS (5)
  - URTICARIA [None]
  - VOMITING [None]
  - DEHYDRATION [None]
  - PRURITUS [None]
  - BLOOD POTASSIUM DECREASED [None]
